FAERS Safety Report 6641763-4 (Version None)
Quarter: 2010Q1

REPORT INFORMATION
  Report Type: 
  Country: None (occurrence: None)
  Receive Date: 20100319
  Receipt Date: 20100308
  Transmission Date: 20100710
  Serious: Yes (Life-Threatening, Hospitalization)
  Sender: FDA-Public Use
  Company Number: DE-RANBAXY-2010RR-32477

PATIENT
  Age: 79 Year
  Sex: Female
  Weight: 81 kg

DRUGS (7)
  1. IBUPROFEN [Suspect]
     Indication: PAIN
     Dosage: 400 MG, TID
     Route: 048
     Dates: start: 20091007, end: 20091021
  2. IBUPROFEN [Suspect]
     Dosage: 400 MG, BID
     Route: 048
     Dates: start: 20091022, end: 20091029
  3. AMIODARON 200-1 A PHARMA [Concomitant]
     Indication: TACHYARRHYTHMIA
     Dosage: 200 MG, QD
     Route: 048
     Dates: start: 20081101, end: 20091029
  4. ASS 100 - 1 A PHARMA [Concomitant]
     Indication: CORONARY ARTERY DISEASE
     Dosage: 100 MG, QD
     Route: 048
     Dates: start: 20030101, end: 20091029
  5. BISOPROLOL 5 - 1 A PHARMA [Concomitant]
     Indication: CORONARY ARTERY DISEASE
     Dosage: 5 MG, QD
     Route: 048
     Dates: start: 20030101, end: 20091029
  6. ENALAPRIL 20 -1 A PHARMA [Concomitant]
     Indication: HYPERTENSION
     Dosage: 20 MG, QD
     Route: 048
     Dates: start: 20030101, end: 20091029
  7. HCT 25 - 1 A PHARMA [Concomitant]
     Indication: HYPERTENSION
     Dosage: 12.5 MG, QD
     Route: 048
     Dates: start: 20000101, end: 20091029

REACTIONS (1)
  - RENAL FAILURE ACUTE [None]
